FAERS Safety Report 19840900 (Version 1)
Quarter: 2021Q3

REPORT INFORMATION
  Report Type: Spontaneous
  Country: DE (occurrence: DE)
  Receive Date: 20210916
  Receipt Date: 20210916
  Transmission Date: 20211014
  Serious: Yes (Hospitalization)
  Sender: FDA-Public Use
  Company Number: DE-TEVA-2021-DE-1951565

PATIENT
  Age: 72 Year
  Sex: Male
  Weight: 68 kg

DRUGS (14)
  1. SIMVASTATIN. [Concomitant]
     Active Substance: SIMVASTATIN
     Dosage: 20 MILLIGRAM DAILY; 0?0?1?0
  2. BISOPROLOL [Suspect]
     Active Substance: BISOPROLOL
     Dosage: 2.5 MILLIGRAM DAILY; 1?0?0?0
     Route: 065
  3. MORPHIN [Concomitant]
     Active Substance: MORPHINE
     Dosage: 10 MILLIGRAM DAILY; 1?0?0?0
  4. GLYCOPYRRONIUM BROMIDE [Concomitant]
     Active Substance: GLYCOPYRROLATE
     Dosage: 43 MICROGRAM DAILY; 1?0?0?0
  5. AZITHROMYCIN ANHYDROUS. [Concomitant]
     Active Substance: AZITHROMYCIN ANHYDROUS
     Dosage: 250 MILLIGRAM DAILY; 1?0?0?0
  6. PANTOPRAZOL [Concomitant]
     Active Substance: PANTOPRAZOLE SODIUM
     Dosage: 40 MILLIGRAM DAILY; 1?0?0?0
  7. KALIUM [Concomitant]
     Active Substance: POTASSIUM CHLORIDE
     Dosage: SCHEME
  8. ACETYLCYSTEIN [Concomitant]
     Active Substance: ACETYLCYSTEINE
     Dosage: 600 MILLIGRAM DAILY; 1?0?0?0
  9. MACROGOL/KALIUMCHLORID/NATRIUMCARBONAT/NATRIUMCHLORID [Concomitant]
     Dosage: 2 DOSAGE FORMS DAILY; 1?1?0?0
  10. SPIRONOLACTON [Concomitant]
     Active Substance: SPIRONOLACTONE
     Dosage: 25 MILLIGRAM DAILY;  0?1?0?0
  11. TORASEMID [Concomitant]
     Active Substance: TORSEMIDE
     Dosage: 10 MILLIGRAM DAILY; 1?0?0?0
  12. COLECALCIFEROL (VITAMIN D)/IBANDRONSAURE [Concomitant]
     Dosage: 1000 IU (INTERNATIONAL UNIT) DAILY; 0?1?0?0
  13. ALENDRONSAURE [Concomitant]
     Active Substance: ALENDRONIC ACID
     Dosage: 70 MG, SCHEME
  14. FENOTEROL [Concomitant]
     Active Substance: FENOTEROL
     Dosage: REQUIREMENT

REACTIONS (11)
  - Weight increased [Unknown]
  - Hyperglycaemia [Unknown]
  - Renal impairment [Unknown]
  - Condition aggravated [Unknown]
  - General physical health deterioration [Unknown]
  - Electrocardiogram abnormal [Unknown]
  - Dyspnoea [Unknown]
  - Acute respiratory failure [Unknown]
  - Hypotension [Unknown]
  - Oedema peripheral [Unknown]
  - Anaemia [Unknown]
